FAERS Safety Report 25217505 (Version 1)
Quarter: 2025Q2

REPORT INFORMATION
  Report Type: Report from Study
  Country: US (occurrence: US)
  Receive Date: 20250420
  Receipt Date: 20250420
  Transmission Date: 20250717
  Serious: Yes (Other)
  Sender: UCB
  Company Number: US-UCBSA-2025022211

PATIENT
  Sex: Female

DRUGS (1)
  1. ROZANOLIXIZUMAB [Suspect]
     Active Substance: ROZANOLIXIZUMAB
     Indication: Myasthenia gravis

REACTIONS (3)
  - Myasthenia gravis [Not Recovered/Not Resolved]
  - Platelet count decreased [Recovering/Resolving]
  - Therapeutic product effect incomplete [Unknown]
